FAERS Safety Report 4662189-9 (Version None)
Quarter: 2005Q2

REPORT INFORMATION
  Report Type: 
  Country: None (occurrence: None)
  Receive Date: 20050516
  Receipt Date: 20050504
  Transmission Date: 20051028
  Serious: Yes (Hospitalization)
  Sender: FDA-Public Use
  Company Number: NL-BRISTOL-MYERS SQUIBB COMPANY-12955738

PATIENT
  Age: 18 Year
  Sex: Male

DRUGS (4)
  1. PACLITAXEL [Suspect]
     Indication: GERM CELL CANCER
     Route: 042
     Dates: start: 20050426, end: 20050426
  2. ETOPOSIDE [Suspect]
     Indication: GERM CELL CANCER
     Route: 042
     Dates: start: 20050426, end: 20050430
  3. CISPLATIN [Suspect]
     Indication: GERM CELL CANCER
     Route: 042
     Dates: start: 20050426, end: 20050430
  4. BLEOMYCIN SULFATE [Suspect]
     Indication: GERM CELL CANCER
     Route: 042
     Dates: start: 20050427, end: 20050427

REACTIONS (1)
  - ANOREXIA [None]
